FAERS Safety Report 9494337 (Version 2)
Quarter: 2013Q3

REPORT INFORMATION
  Report Type: Spontaneous
  Country: CN (occurrence: CN)
  Receive Date: 20130903
  Receipt Date: 20130903
  Transmission Date: 20140515
  Serious: Yes (Hospitalization, Other)
  Sender: FDA-Public Use
  Company Number: CN-ROCHE-1268808

PATIENT
  Sex: Female
  Weight: 62 kg

DRUGS (2)
  1. ROCEPHIN [Suspect]
     Indication: INFECTION
     Route: 065
     Dates: start: 20120114, end: 20121120
  2. DIAMMONIUM GLYCYRRHIZINATE [Concomitant]
     Dosage: 150MG IVGTT QD
     Route: 065

REACTIONS (1)
  - Hepatitis [Recovering/Resolving]
